FAERS Safety Report 10426935 (Version 3)
Quarter: 2014Q4

REPORT INFORMATION
  Report Type: Report from Study
  Country: US (occurrence: US)
  Receive Date: 20140903
  Receipt Date: 20141001
  Transmission Date: 20150528
  Serious: Yes (Death, Hospitalization, Other)
  Sender: FDA-Public Use
  Company Number: US-ALEXION PHARMACEUTICALS INC-A201403242

PATIENT

DRUGS (1)
  1. SOLIRIS [Suspect]
     Active Substance: ECULIZUMAB
     Indication: PRODUCT USED FOR UNKNOWN INDICATION
     Route: 042

REACTIONS (11)
  - Infection [Unknown]
  - Spinal cord infection [Unknown]
  - Cystitis [Unknown]
  - Malaise [Unknown]
  - Death [Fatal]
  - Sensory loss [Not Recovered/Not Resolved]
  - Haemodialysis [Unknown]
  - Pneumonia [Unknown]
  - Cerebrovascular accident [Unknown]
  - Back pain [Unknown]
  - White blood cell count increased [Unknown]

NARRATIVE: CASE EVENT DATE: 201408
